FAERS Safety Report 20102491 (Version 1)
Quarter: 2021Q4

REPORT INFORMATION
  Report Type: Spontaneous
  Country: TR (occurrence: TR)
  Receive Date: 20211123
  Receipt Date: 20211123
  Transmission Date: 20220303
  Serious: Yes (Other)
  Sender: FDA-Public Use
  Company Number: TR-ABBVIE-21K-161-4171742-00

PATIENT
  Sex: Male
  Weight: 93 kg

DRUGS (4)
  1. VALPROATE SODIUM [Suspect]
     Active Substance: VALPROATE SODIUM
     Indication: Bipolar disorder
     Dosage: 3X1 VE 2X1, 3X1 VE 2X1
     Route: 048
  2. VALPROATE SODIUM [Suspect]
     Active Substance: VALPROATE SODIUM
     Dosage: 3X1 VE 2X1, 3X1 VE 2X1?DOSE REDUCED
     Route: 048
  3. QUETIAPINE FUMARATE [Suspect]
     Active Substance: QUETIAPINE FUMARATE
     Indication: Bipolar disorder
     Dosage: 1X1, 1X1
     Route: 048
  4. NITRAZEPAM [Suspect]
     Active Substance: NITRAZEPAM
     Indication: Bipolar disorder
     Dosage: 2X1, 2X1
     Route: 048

REACTIONS (5)
  - Mental impairment [Not Recovered/Not Resolved]
  - Deafness [Not Recovered/Not Resolved]
  - Indifference [Not Recovered/Not Resolved]
  - Memory impairment [Not Recovered/Not Resolved]
  - Fracture [Not Recovered/Not Resolved]
